FAERS Safety Report 17140151 (Version 1)
Quarter: 2019Q4

REPORT INFORMATION
  Report Type: Spontaneous
  Country: US (occurrence: US)
  Receive Date: 20191211
  Receipt Date: 20191211
  Transmission Date: 20200122
  Serious: No
  Sender: FDA-Public Use
  Company Number: US-UCBSA-2016013112

PATIENT
  Sex: Female

DRUGS (2)
  1. KEPPRA XR [Suspect]
     Active Substance: LEVETIRACETAM
     Indication: PRODUCT USED FOR UNKNOWN INDICATION
     Dosage: UNKNOWN DOSE
  2. ESLICARBAZEPINE [Suspect]
     Active Substance: ESLICARBAZEPINE
     Indication: PRODUCT USED FOR UNKNOWN INDICATION
     Dosage: UNKNOWN DOSE

REACTIONS (10)
  - Memory impairment [Unknown]
  - Frustration tolerance decreased [Unknown]
  - Seizure [Unknown]
  - Fatigue [Unknown]
  - Dizziness [Unknown]
  - Anger [Unknown]
  - Decreased appetite [Unknown]
  - Restlessness [Unknown]
  - Somnolence [Unknown]
  - Paranoia [Unknown]
